FAERS Safety Report 8773785 (Version 1)
Quarter: 2012Q4

REPORT INFORMATION
  Report Type: 
  Country: FR (occurrence: FR)
  Receive Date: 20120907
  Receipt Date: 20120907
  Transmission Date: 20130627
  Serious: Yes (Death, Life-Threatening, Hospitalization, Other)
  Sender: FDA-Public Use
  Company Number: FR-ASTRAZENECA-2012SE69648

PATIENT
  Age: 48 Year
  Sex: Male

DRUGS (16)
  1. MERONEM [Suspect]
     Route: 042
     Dates: start: 20120710, end: 20120716
  2. MERONEM [Suspect]
     Route: 042
     Dates: start: 20120726, end: 20120803
  3. OGASTORO [Suspect]
     Route: 048
     Dates: start: 20120716, end: 20120730
  4. LASILIX [Suspect]
     Route: 042
     Dates: start: 20120703, end: 20120709
  5. LASILIX [Suspect]
     Route: 042
     Dates: start: 20120721, end: 20120724
  6. LASILIX [Suspect]
     Route: 042
     Dates: start: 20120727, end: 20120731
  7. HEPARINE CHOAY [Suspect]
     Route: 042
     Dates: start: 20120701, end: 20120707
  8. HEPARINE CHOAY [Suspect]
     Route: 042
     Dates: start: 20120721, end: 20120725
  9. HEPARINE CHOAY [Suspect]
     Route: 042
     Dates: start: 20120727
  10. FLAGYL [Suspect]
     Dates: start: 20120626, end: 20120702
  11. FLAGYL [Suspect]
     Dates: start: 20120728
  12. COLIMYCINE [Suspect]
     Dates: start: 20120810
  13. COLIMYCINE [Suspect]
     Dates: start: 20120709, end: 20120731
  14. PARACETAMOL [Concomitant]
  15. IBUPROFEN [Concomitant]
  16. PIVALONE [Concomitant]

REACTIONS (4)
  - Drug reaction with eosinophilia and systemic symptoms [Fatal]
  - Staphylococcus test positive [Unknown]
  - Bacteraemia [Unknown]
  - Drug reaction with eosinophilia and systemic symptoms [None]
